FAERS Safety Report 21903483 (Version 1)
Quarter: 2023Q1

REPORT INFORMATION
  Report Type: Spontaneous
  Country: AT (occurrence: AT)
  Receive Date: 20230124
  Receipt Date: 20230124
  Transmission Date: 20230418
  Serious: Yes (Other)
  Sender: FDA-Public Use
  Company Number: None

PATIENT
  Age: 66 Year
  Sex: Female

DRUGS (1)
  1. ULTRAVIST [Suspect]
     Active Substance: IOPROMIDE
     Indication: Computerised tomogram
     Dosage: ACCORDING TO THE SUMMARY OF PRODUCT CHARACTERISTICS
     Dates: start: 20221012, end: 20221012

REACTIONS (3)
  - Pruritus [Unknown]
  - Type IV hypersensitivity reaction [Unknown]
  - Blister [Unknown]

NARRATIVE: CASE EVENT DATE: 20221012
